FAERS Safety Report 15083058 (Version 4)
Quarter: 2018Q3

REPORT INFORMATION
  Report Type: Spontaneous
  Country: DE (occurrence: DE)
  Receive Date: 20180628
  Receipt Date: 20180820
  Transmission Date: 20181010
  Serious: Yes (Death)
  Sender: FDA-Public Use
  Company Number: DE-ALLERGAN-1832494US

PATIENT
  Sex: Female

DRUGS (4)
  1. CEFTAZIDIME;AVIBACTAM UNK [Suspect]
     Active Substance: AVIBACTAM SODIUM\CEFTAZIDIME
     Indication: PERITONITIS
     Dosage: UNK
     Route: 065
  2. CEFTAZIDIME;AVIBACTAM UNK [Suspect]
     Active Substance: AVIBACTAM SODIUM\CEFTAZIDIME
     Indication: PNEUMONIA
  3. CEFTAZIDIME. [Suspect]
     Active Substance: CEFTAZIDIME
     Indication: PERITONITIS
     Dosage: UNK
     Route: 065
  4. CEFTAZIDIME. [Suspect]
     Active Substance: CEFTAZIDIME
     Indication: PNEUMONIA

REACTIONS (1)
  - Drug ineffective [Fatal]
